FAERS Safety Report 7705879-3 (Version None)
Quarter: 2011Q3

REPORT INFORMATION
  Report Type: 
  Country: None (occurrence: None)
  Receive Date: 20110824
  Receipt Date: 20110815
  Transmission Date: 20111222
  Serious: Yes (Other)
  Sender: FDA-Public Use
  Company Number: BR-SANOFI-AVENTIS-2011SA053491

PATIENT
  Age: 63 Year
  Sex: Male
  Weight: 86 kg

DRUGS (10)
  1. METOPROLOL SUCCINATE [Concomitant]
     Indication: ANGINA PECTORIS
     Route: 048
  2. LANTUS [Suspect]
     Indication: TYPE 2 DIABETES MELLITUS
     Dosage: 20IU AND 8IU BEFORE SLEEPING
     Route: 058
     Dates: start: 20110101
  3. CLIKSTAR [Suspect]
  4. AAS PROTECT [Concomitant]
     Indication: ANTICOAGULANT THERAPY
     Route: 048
  5. METFORMIN HCL [Concomitant]
     Indication: TYPE 2 DIABETES MELLITUS
     Route: 048
  6. PANTOPRAZOLE [Concomitant]
     Indication: GASTRIC DISORDER
     Route: 048
     Dates: start: 20110101
  7. ALISKIREN [Concomitant]
     Route: 048
     Dates: start: 20110101
  8. ATACAND [Concomitant]
     Route: 048
  9. CLOPIDOGREL [Concomitant]
     Route: 048
  10. ALL OTHER THERAPEUTIC PRODUCTS [Concomitant]
     Route: 048

REACTIONS (5)
  - THIRST [None]
  - HYPERGLYCAEMIA [None]
  - FORMICATION [None]
  - POLLAKIURIA [None]
  - MYOCARDIAL INFARCTION [None]
